FAERS Safety Report 5005736-X (Version None)
Quarter: 2006Q2

REPORT INFORMATION
  Report Type: 
  Country: None (occurrence: None)
  Receive Date: 20060515
  Receipt Date: 20060504
  Transmission Date: 20061013
  Serious: Yes (Hospitalization, Other)
  Sender: FDA-Public Use
  Company Number: HQWYE195705MAY06

PATIENT
  Age: 7 Year
  Sex: Male

DRUGS (2)
  1. ADVIL [Suspect]
     Indication: PYREXIA
     Dosage: 3 'INTAKES/DAY^, ORAL
     Route: 048
     Dates: start: 20060129, end: 20060202
  2. TOPLEXIL (OXOMEMAZINE) [Concomitant]

REACTIONS (6)
  - HEART RATE IRREGULAR [None]
  - PHARYNGEAL INFLAMMATION [None]
  - PYREXIA [None]
  - RENAL FAILURE ACUTE [None]
  - VENTRICULAR EXTRASYSTOLES [None]
  - VIRAL INFECTION [None]
